FAERS Safety Report 7977214-7 (Version None)
Quarter: 2011Q4

REPORT INFORMATION
  Report Type: 
  Country: None (occurrence: None)
  Receive Date: 20111213
  Receipt Date: 20111114
  Transmission Date: 20120403
  Serious: No
  Sender: FDA-Public Use
  Company Number: US-AMGEN-USASP2011059735

PATIENT
  Age: 54 Year
  Sex: Female

DRUGS (2)
  1. ARAVA [Concomitant]
     Dosage: 1 MG, UNK
     Dates: start: 20111001
  2. ENBREL [Suspect]
     Indication: RHEUMATOID ARTHRITIS
     Dosage: 50 MG, QWK
     Dates: start: 20110418

REACTIONS (1)
  - INJECTION SITE PAIN [None]
